FAERS Safety Report 18822541 (Version 1)
Quarter: 2021Q1

REPORT INFORMATION
  Report Type: Spontaneous
  Country: US (occurrence: US)
  Receive Date: 20210202
  Receipt Date: 20210202
  Transmission Date: 20210419
  Serious: Yes (Other)
  Sender: FDA-Public Use
  Company Number: US-AZURITY PHARMACEUTICALS, INC.-2021AZY00014

PATIENT
  Age: 31 Year
  Sex: Female

DRUGS (2)
  1. VANCOMYCIN HYDROCHLORIDE. [Suspect]
     Active Substance: VANCOMYCIN HYDROCHLORIDE
     Indication: PYREXIA
     Route: 042
  2. PIPERCILLIAN?TAZOBACTAM [Concomitant]
     Indication: PYREXIA
     Route: 065

REACTIONS (1)
  - Linear IgA disease [Recovering/Resolving]
